FAERS Safety Report 24594072 (Version 1)
Quarter: 2024Q4

REPORT INFORMATION
  Report Type: Spontaneous
  Country: US (occurrence: US)
  Receive Date: 20241108
  Receipt Date: 20241108
  Transmission Date: 20250114
  Serious: Yes (Other)
  Sender: RANBAXY
  Company Number: US-SUN PHARMACEUTICAL INDUSTRIES LTD-2024R1-477519

PATIENT
  Age: 41 Year
  Sex: Female

DRUGS (1)
  1. ZOLPIDEM [Suspect]
     Active Substance: ZOLPIDEM TARTRATE
     Indication: Product used for unknown indication
     Dosage: UNK
     Route: 065

REACTIONS (10)
  - Leukopenia [Unknown]
  - Hyperbilirubinaemia [Unknown]
  - Drug-induced liver injury [Unknown]
  - Porphyria non-acute [Unknown]
  - Hepatic function abnormal [Unknown]
  - Cholangitis sclerosing [Unknown]
  - Infection [Unknown]
  - Normocytic anaemia [Unknown]
  - Fibrosis [Unknown]
  - Hepatic enzyme increased [Unknown]
